FAERS Safety Report 20091127 (Version 1)
Quarter: 2021Q4

REPORT INFORMATION
  Report Type: Spontaneous
  Country: CN (occurrence: CN)
  Receive Date: 20211119
  Receipt Date: 20211119
  Transmission Date: 20220303
  Serious: Yes (Other)
  Sender: FDA-Public Use
  Company Number: CN-PFIZER INC-202101566514

PATIENT
  Age: 31 Year
  Sex: Female
  Weight: 42 kg

DRUGS (3)
  1. CYTARABINE [Suspect]
     Active Substance: CYTARABINE
     Indication: Chemotherapy
     Dosage: 0.1 G, 2X/DAY
     Route: 041
     Dates: start: 20211016, end: 20211022
  2. CYTARABINE [Suspect]
     Active Substance: CYTARABINE
     Indication: Acute leukaemia
  3. SODIUM CHLORIDE [Concomitant]
     Active Substance: SODIUM CHLORIDE
     Indication: Vehicle solution use
     Dosage: 100.000 ML, 2X/DAY
     Route: 041
     Dates: start: 20211016, end: 20211022

REACTIONS (2)
  - Rash [Recovered/Resolved]
  - Papule [Recovered/Resolved]

NARRATIVE: CASE EVENT DATE: 20211019
